FAERS Safety Report 19246379 (Version 1)
Quarter: 2021Q2

REPORT INFORMATION
  Report Type: Spontaneous
  Country: US (occurrence: US)
  Receive Date: 20210512
  Receipt Date: 20210512
  Transmission Date: 20210717
  Serious: Yes (Other)
  Sender: FDA-Public Use
  Company Number: US-NOVEN PHARMACEUTICALS, INC.-2021US003298

PATIENT
  Sex: Female

DRUGS (1)
  1. DAYTRANA [Suspect]
     Active Substance: METHYLPHENIDATE
     Indication: ATTENTION DEFICIT HYPERACTIVITY DISORDER
     Dosage: 15 MG/9 HOURS, UNK
     Route: 062
     Dates: start: 202102

REACTIONS (5)
  - Product administered at inappropriate site [Not Recovered/Not Resolved]
  - Device breakage [Not Recovered/Not Resolved]
  - Device difficult to use [Not Recovered/Not Resolved]
  - No adverse event [Unknown]
  - Product administration error [Not Recovered/Not Resolved]
